FAERS Safety Report 22604125 (Version 1)
Quarter: 2023Q2

REPORT INFORMATION
  Report Type: Spontaneous
  Country: US (occurrence: US)
  Receive Date: 20230615
  Receipt Date: 20230615
  Transmission Date: 20230722
  Serious: Yes (Other)
  Sender: FDA-Public Use
  Company Number: US-drreddys-LIT/USA/23/0167007

PATIENT
  Age: 80 Year
  Sex: Female

DRUGS (4)
  1. LIDOCAINE [Suspect]
     Active Substance: LIDOCAINE
     Indication: Obstruction gastric
  2. LIDOCAINE [Suspect]
     Active Substance: LIDOCAINE
     Indication: Oesophageal motility disorder
  3. BOTULINUM TOXIN NOS [Suspect]
     Active Substance: BOTULINUM TOXIN NOS
     Indication: Obstruction gastric
  4. BOTULINUM TOXIN NOS [Suspect]
     Active Substance: BOTULINUM TOXIN NOS
     Indication: Oesophageal motility disorder

REACTIONS (6)
  - Disease progression [Recovering/Resolving]
  - Obstruction gastric [Recovering/Resolving]
  - Drug ineffective for unapproved indication [Unknown]
  - Oesophageal spasm [Recovering/Resolving]
  - Hereditary alpha tryptasaemia [Unknown]
  - Food intolerance [Recovering/Resolving]
